FAERS Safety Report 25957072 (Version 1)
Quarter: 2025Q4

REPORT INFORMATION
  Report Type: Spontaneous
  Country: US (occurrence: None)
  Receive Date: 20251023
  Receipt Date: 20251023
  Transmission Date: 20260117
  Serious: Yes (Other)
  Sender: FDA-CTU
  Company Number: None

PATIENT
  Age: 41 Year
  Sex: Female

DRUGS (2)
  1. NALTREXONE HYDROCHLORIDE [Suspect]
     Active Substance: NALTREXONE HYDROCHLORIDE
     Indication: Weight decreased
     Dosage: : QOD ORAL ?
     Route: 048
     Dates: start: 20250807, end: 20251021
  2. BUPROPION [Concomitant]
     Active Substance: BUPROPION
     Dates: start: 20250807, end: 20251021

REACTIONS (4)
  - Heavy menstrual bleeding [None]
  - Thrombosis [None]
  - Pain [None]
  - Heavy menstrual bleeding [None]

NARRATIVE: CASE EVENT DATE: 20251021
